FAERS Safety Report 20875378 (Version 3)
Quarter: 2024Q3

REPORT INFORMATION
  Report Type: Spontaneous
  Country: CA (occurrence: CA)
  Receive Date: 20220526
  Receipt Date: 20240924
  Transmission Date: 20241016
  Serious: Yes (Other)
  Sender: CELLTRION
  Company Number: CA-CELLTRION INC.-2022CA006314

PATIENT

DRUGS (24)
  1. TRUXIMA [Suspect]
     Active Substance: RITUXIMAB-ABBS
     Indication: Rheumatoid arthritis
     Dosage: 1000 MG INFUSION #2
     Route: 042
     Dates: start: 20220421
  2. TRUXIMA [Suspect]
     Active Substance: RITUXIMAB-ABBS
     Dosage: 1000 MG (INFUSION #5)
     Route: 042
     Dates: start: 20220421
  3. TRUXIMA [Suspect]
     Active Substance: RITUXIMAB-ABBS
     Dosage: 1000 MG
     Route: 042
     Dates: start: 20220421
  4. TRUXIMA [Suspect]
     Active Substance: RITUXIMAB-ABBS
     Dosage: 1000 MG INFUSION#8
     Route: 042
     Dates: start: 20220421
  5. TRUXIMA [Suspect]
     Active Substance: RITUXIMAB-ABBS
     Dosage: 1000 MG, DAY1/DAY15
     Route: 042
     Dates: start: 20220421
  6. TRUXIMA [Suspect]
     Active Substance: RITUXIMAB-ABBS
     Dosage: 1000 MG, DAY1
     Route: 042
  7. BENADRYL [Concomitant]
     Active Substance: DIPHENHYDRAMINE HYDROCHLORIDE
     Indication: Premedication
     Dosage: 50 MG
     Route: 048
  8. SOLU-MEDROL [Concomitant]
     Active Substance: METHYLPREDNISOLONE SODIUM SUCCINATE
     Indication: Premedication
     Dosage: 100 MG IV IN NS 50 ML START IN 15 MIN
     Route: 042
  9. ACETAMINOPHEN [Concomitant]
     Active Substance: ACETAMINOPHEN
     Indication: Premedication
     Dosage: 650 MG
     Route: 048
  10. PREGABALIN [Concomitant]
     Active Substance: PREGABALIN
     Indication: Relaxation therapy
     Dosage: 50 MG, ONCE DAILY
  11. PAROXETINE [Concomitant]
     Active Substance: PAROXETINE
     Indication: Depression
     Dosage: 20 MG, ONCE DAILY
  12. PAROXETINE [Concomitant]
     Active Substance: PAROXETINE
     Dosage: 30 MG, ONCE DAILY AT BREAKFAST
  13. PREGABALIN [Concomitant]
     Active Substance: PREGABALIN
     Indication: Relaxation therapy
     Dosage: 75 MG, ONCE DAILY
  14. DEXILANT [Concomitant]
     Active Substance: DEXLANSOPRAZOLE
     Indication: Rheumatoid arthritis
     Dosage: 60 MG, ONCE DAILY
  15. METHOTREXATE [Concomitant]
     Active Substance: METHOTREXATE
     Indication: Rheumatoid arthritis
     Dosage: 20 MG INJECTION ONCE WEEKLY DONE AT HOME
  16. SANDOZ FOLIC ACID [Concomitant]
     Indication: Liver disorder
     Dosage: 5 MG, EVERY TWO DAYS IN THE MORNING
  17. JAMP VITAMIN D3 [Concomitant]
     Dosage: 10000 UNITS ONCE WEEKLY
  18. FLURBIPROFEN [Concomitant]
     Active Substance: FLURBIPROFEN
     Indication: Antiinflammatory therapy
     Dosage: 100 MG, AS NEEDED
  19. ATIVAN [Concomitant]
     Active Substance: LORAZEPAM
     Indication: Relaxation therapy
     Dosage: 1 MG, 2 TIMES DAILY AS NEEDED
  20. DIPHENHYDRAMINE HYDROCHLORIDE [Concomitant]
     Active Substance: DIPHENHYDRAMINE HYDROCHLORIDE
     Indication: Premedication
     Dosage: 50 MILLIGRAM PO
     Route: 048
  21. METHYLPREDNISOLONE [Concomitant]
     Active Substance: METHYLPREDNISOLONE
     Indication: Premedication
     Dosage: 100 MILLIGRAM IV
     Route: 042
  22. SYNTHROID [Concomitant]
     Active Substance: LEVOTHYROXINE SODIUM
     Indication: Thyroid disorder
     Dosage: 75 MCG DAILY IN THE MORNING (FOR THYROID)
  23. VIT D [VITAMIN D NOS] [Concomitant]
  24. METHOTREXATE SODIUM [Concomitant]
     Active Substance: METHOTREXATE SODIUM

REACTIONS (13)
  - SARS-CoV-2 test positive [Unknown]
  - Hypertension [Recovered/Resolved]
  - Surgery [Unknown]
  - Knee operation [Unknown]
  - Headache [Recovered/Resolved]
  - Headache [Recovered/Resolved]
  - Fatigue [Recovered/Resolved]
  - Nausea [Recovered/Resolved]
  - Cough [Unknown]
  - Nasopharyngitis [Unknown]
  - Intentional dose omission [Unknown]
  - Off label use [Unknown]
  - Off label use [Unknown]

NARRATIVE: CASE EVENT DATE: 20220422
